FAERS Safety Report 4845450-4 (Version None)
Quarter: 2005Q4

REPORT INFORMATION
  Report Type: 
  Country: None (occurrence: None)
  Receive Date: 20051129
  Receipt Date: 20051114
  Transmission Date: 20060501
  Serious: Yes (Life-Threatening)
  Sender: FDA-Public Use
  Company Number: 2005-134916-NL

PATIENT
  Age: 56 Year
  Sex: Male

DRUGS (3)
  1. VECURONIUM BROMIDE [Suspect]
     Indication: ANAESTHESIA
     Dosage: 3 MG ONCE INTRAVENOUS (NOS)
     Route: 042
  2. PROPOFOL [Suspect]
     Indication: ANAESTHESIA
     Dosage: 30 MG OM  INTRAVENOUS (NOS)
     Route: 042
  3. OXYGEN [Concomitant]

REACTIONS (5)
  - ANAEMIA [None]
  - BLOOD PRESSURE IMMEASURABLE [None]
  - CARDIAC ARREST [None]
  - GASTRECTOMY [None]
  - METABOLIC ACIDOSIS [None]
